FAERS Safety Report 13423599 (Version 1)
Quarter: 2017Q2

REPORT INFORMATION
  Report Type: Spontaneous
  Country: US (occurrence: US)
  Receive Date: 20170410
  Receipt Date: 20170410
  Transmission Date: 20170830
  Serious: Yes (Other)
  Sender: FDA-Public Use
  Company Number: US-PFIZER INC-2017147543

PATIENT
  Age: 56 Year
  Sex: Female

DRUGS (1)
  1. BOSULIF [Suspect]
     Active Substance: BOSUTINIB MONOHYDRATE
     Indication: CHRONIC MYELOID LEUKAEMIA
     Dosage: 500 MG, DAILY
     Route: 048

REACTIONS (6)
  - Sarcoidosis [Unknown]
  - Lip swelling [Unknown]
  - Hypoaesthesia oral [Unknown]
  - Mouth swelling [Unknown]
  - Swelling face [Unknown]
  - Eating disorder [Unknown]
